FAERS Safety Report 26054915 (Version 2)
Quarter: 2025Q4

REPORT INFORMATION
  Report Type: Spontaneous
  Country: JP (occurrence: JP)
  Receive Date: 20251117
  Receipt Date: 20251119
  Transmission Date: 20260118
  Serious: Yes (Other)
  Sender: INCYTE
  Company Number: JP-002147023-NVSJ2025JP010822

PATIENT
  Age: 66 Year

DRUGS (2)
  1. RUXOLITINIB [Suspect]
     Active Substance: RUXOLITINIB
     Indication: Acute graft versus host disease
     Dosage: UNK
  2. RUXOLITINIB [Suspect]
     Active Substance: RUXOLITINIB
     Dosage: UNK

REACTIONS (6)
  - Chronic graft versus host disease [Recovering/Resolving]
  - Myelodysplastic syndrome [Recovering/Resolving]
  - Cytomegalovirus viraemia [Unknown]
  - Cytomegalovirus enterocolitis [Unknown]
  - Organising pneumonia [Unknown]
  - Diarrhoea [Recovering/Resolving]
